FAERS Safety Report 9796554 (Version 2)
Quarter: 2014Q1

REPORT INFORMATION
  Report Type: Spontaneous
  Country: IT (occurrence: IT)
  Receive Date: 20140103
  Receipt Date: 20140220
  Transmission Date: 20141002
  Serious: Yes (Hospitalization)
  Sender: FDA-Public Use
  Company Number: IT-ACTAVIS-2013-24079

PATIENT
  Age: 66 Year
  Sex: Male

DRUGS (5)
  1. CLOPIDOGREL (UNKNOWN) [Suspect]
     Indication: STENT PLACEMENT
     Dosage: UNK
     Route: 065
     Dates: start: 20130905, end: 20130910
  2. CARDIOASPIRIN [Suspect]
     Indication: STENT PLACEMENT
     Dosage: 100 MG, DAILY
     Route: 048
     Dates: start: 20130905, end: 20130910
  3. SIMVASTATIN [Concomitant]
     Indication: DYSLIPIDAEMIA
     Dosage: UNK
  4. BISOPROLOL HEMIFUMARATE [Concomitant]
     Indication: PRODUCT USED FOR UNKNOWN INDICATION
     Dosage: UNK
  5. NITROGLYCERIN [Concomitant]
     Indication: PRODUCT USED FOR UNKNOWN INDICATION
     Dosage: UNK

REACTIONS (2)
  - Duodenal ulcer haemorrhage [Recovering/Resolving]
  - Anaemia [Recovering/Resolving]
